FAERS Safety Report 7221991-X (Version None)
Quarter: 2011Q1

REPORT INFORMATION
  Report Type: 
  Country: None (occurrence: None)
  Receive Date: 20110112
  Receipt Date: 20110107
  Transmission Date: 20110831
  Serious: Yes (Hospitalization)
  Sender: FDA-Public Use
  Company Number: US-B.I. PHARMACEUTICALS,INC./RIDGEFIELD-2011-BP-00527BP

PATIENT
  Age: 85 Year
  Sex: Female

DRUGS (6)
  1. PRADAXA [Suspect]
     Dosage: 300 MG
     Dates: start: 20101220
  2. LIPITOR [Concomitant]
  3. LASIX [Concomitant]
  4. FENOFIBRATE [Concomitant]
  5. MONOPRIL HCTZ [Concomitant]
  6. SYNTHROID [Concomitant]

REACTIONS (3)
  - ARTHRALGIA [None]
  - JOINT SWELLING [None]
  - OEDEMA [None]
